FAERS Safety Report 25555670 (Version 7)
Quarter: 2025Q4

REPORT INFORMATION
  Report Type: Report from Study
  Country: US (occurrence: US)
  Receive Date: 20250715
  Receipt Date: 20251030
  Transmission Date: 20260117
  Serious: Yes (Other)
  Sender: NOVARTIS
  Company Number: US-002147023-NVSC2025US111477

PATIENT
  Age: 85 Year
  Sex: Female

DRUGS (3)
  1. LEQVIO [Suspect]
     Active Substance: INCLISIRAN SODIUM
     Indication: Product used for unknown indication
     Dosage: UNK
     Route: 058
     Dates: start: 20250627
  2. LEQVIO [Suspect]
     Active Substance: INCLISIRAN SODIUM
     Dosage: UNK
     Route: 058
     Dates: start: 202507
  3. LEQVIO [Suspect]
     Active Substance: INCLISIRAN SODIUM
     Dosage: UNK
     Route: 058
     Dates: start: 20250924

REACTIONS (11)
  - Neuropathy peripheral [Not Recovered/Not Resolved]
  - Injection site pain [Unknown]
  - Dyspnoea [Unknown]
  - High density lipoprotein decreased [Unknown]
  - Foaming at mouth [Recovered/Resolved]
  - Arthralgia [Unknown]
  - Back pain [Unknown]
  - Pain [Unknown]
  - Injection site bruising [Unknown]
  - Paraesthesia [Unknown]
  - Paranasal sinus hypersecretion [Unknown]

NARRATIVE: CASE EVENT DATE: 20250627
